FAERS Safety Report 4316257-1 (Version None)
Quarter: 2004Q1

REPORT INFORMATION
  Report Type: 
  Country: None (occurrence: None)
  Receive Date: 20040312
  Receipt Date: 20040305
  Transmission Date: 20041129
  Serious: Yes (Life-Threatening)
  Sender: FDA-Public Use
  Company Number: NL-ROCHE-361119

PATIENT
  Age: 40 Year
  Sex: Female

DRUGS (4)
  1. PEGASYS [Suspect]
     Dosage: FORM INJECTABLE SOLUTION.
     Route: 058
     Dates: start: 20040121, end: 20040205
  2. REBETOL [Suspect]
     Route: 048
     Dates: start: 20040121, end: 20040205
  3. TRIZIVIR [Concomitant]
     Route: 048
     Dates: start: 20030103
  4. STOCRIN [Concomitant]
     Route: 048
     Dates: start: 20030103

REACTIONS (2)
  - HAEMOGLOBIN DECREASED [None]
  - HAEMOLYSIS [None]
